FAERS Safety Report 14548771 (Version 1)
Quarter: 2018Q1

REPORT INFORMATION
  Report Type: Spontaneous
  Country: US (occurrence: US)
  Receive Date: 20180219
  Receipt Date: 20180219
  Transmission Date: 20180509
  Serious: No
  Sender: FDA-Public Use
  Company Number: US-ROCHE-1936229

PATIENT
  Age: 55 Year
  Sex: Female

DRUGS (3)
  1. NUTROPIN AQ [Suspect]
     Active Substance: SOMATROPIN
     Route: 058
     Dates: start: 20170510
  2. NUTROPIN AQ [Suspect]
     Active Substance: SOMATROPIN
     Indication: HYPOPITUITARISM
     Route: 058
     Dates: start: 20170509
  3. PREDNISONE. [Suspect]
     Active Substance: PREDNISONE
     Indication: PRODUCT USED FOR UNKNOWN INDICATION
     Route: 065

REACTIONS (6)
  - Fatigue [Unknown]
  - Pain [Unknown]
  - Headache [Unknown]
  - Feeling abnormal [Unknown]
  - Asthenia [Unknown]
  - Peripheral swelling [Unknown]

NARRATIVE: CASE EVENT DATE: 20170530
